FAERS Safety Report 7538708-1 (Version None)
Quarter: 2011Q2

REPORT INFORMATION
  Report Type: 
  Country: None (occurrence: None)
  Receive Date: 20110610
  Receipt Date: 20110608
  Transmission Date: 20111010
  Serious: No
  Sender: FDA-Public Use
  Company Number: US-PFIZER INC-2011125490

PATIENT
  Sex: Male
  Weight: 111.11 kg

DRUGS (9)
  1. FLOMAX [Concomitant]
     Dosage: UNK
  2. ASCORBIC ACID [Concomitant]
     Dosage: UNK
  3. XANAX [Concomitant]
     Dosage: UNK
  4. DETROL LA [Suspect]
     Indication: PROSTATOMEGALY
     Dosage: 2 MG, DAILY
     Route: 048
     Dates: start: 20110531
  5. DETROL LA [Suspect]
     Dosage: 4 MG, 1X/DAY
     Dates: start: 20110601
  6. GLUCOPHAGE [Concomitant]
     Indication: DIABETES MELLITUS
     Dosage: UNK
  7. PRILOSEC [Concomitant]
     Dosage: UNK
  8. MOTRIN [Concomitant]
     Dosage: UNK
  9. TYLENOL-500 [Concomitant]
     Dosage: UNK

REACTIONS (2)
  - FAECES DISCOLOURED [None]
  - DRUG INEFFECTIVE [None]
